FAERS Safety Report 21307287 (Version 1)
Quarter: 2022Q3

REPORT INFORMATION
  Report Type: Spontaneous
  Country: ID (occurrence: ID)
  Receive Date: 20220908
  Receipt Date: 20220908
  Transmission Date: 20221026
  Serious: Yes (Death, Other)
  Sender: FDA-Public Use
  Company Number: ID-ELI_LILLY_AND_COMPANY-ID202209001872

PATIENT
  Age: 47 Year
  Sex: Male

DRUGS (1)
  1. TADALAFIL [Suspect]
     Active Substance: TADALAFIL
     Indication: Erectile dysfunction
     Dosage: 5 MG, UNKNOWN
     Route: 065

REACTIONS (13)
  - Malignant neoplasm progression [Fatal]
  - Chronic kidney disease [Not Recovered/Not Resolved]
  - Ureteric stenosis [Not Recovered/Not Resolved]
  - Radiation injury [Not Recovered/Not Resolved]
  - Hydronephrosis [Not Recovered/Not Resolved]
  - Painful erection [Unknown]
  - Anaemia [Unknown]
  - Leukocytosis [Unknown]
  - Hypoalbuminaemia [Unknown]
  - Hyponatraemia [Unknown]
  - Hyperkalaemia [Unknown]
  - Blood urea increased [Unknown]
  - Blood creatinine increased [Unknown]
